FAERS Safety Report 5796020-5 (Version None)
Quarter: 2008Q3

REPORT INFORMATION
  Report Type: 
  Country: None (occurrence: None)
  Receive Date: 20080701
  Receipt Date: 20080620
  Transmission Date: 20090109
  Serious: Yes (Other)
  Sender: FDA-Public Use
  Company Number: US-ROCHE-484928

PATIENT
  Sex: Female
  Weight: 51.8 kg

DRUGS (4)
  1. XELODA [Suspect]
     Indication: COLON CANCER
     Dosage: 8 TABLETS DAILY, DOSAGE DECREASED
     Route: 065
     Dates: start: 20060912
  2. XELODA [Suspect]
     Dosage: DOSAGE REDUCED DUE TO HAND AND FOOT SYNDROME.
     Route: 065
  3. XELODA [Suspect]
     Route: 065
     Dates: end: 20070607
  4. UNSPECIFIED DRUG [Suspect]
     Dosage: 'CHOLESTOFF' (OVER THE COUNTER PRODUCT)
     Route: 065

REACTIONS (3)
  - BLOOD CHOLESTEROL INCREASED [None]
  - CARCINOEMBRYONIC ANTIGEN INCREASED [None]
  - PALMAR-PLANTAR ERYTHRODYSAESTHESIA SYNDROME [None]
